FAERS Safety Report 6243840-9 (Version None)
Quarter: 2009Q2

REPORT INFORMATION
  Report Type: 
  Country: None (occurrence: None)
  Receive Date: 20090623
  Receipt Date: 20090605
  Transmission Date: 20091009
  Serious: Yes (Other)
  Sender: FDA-Public Use
  Company Number: 20090212

PATIENT
  Age: 21 Year
  Sex: Female

DRUGS (6)
  1. VENOFER [Suspect]
     Indication: HYPOCHROMIC ANAEMIA
     Dosage: 200 MG IN 200ML NS INTRAVENOUS
     Route: 042
     Dates: start: 20090226, end: 20090311
  2. FERRIMED (IRON SUCROSE) [Concomitant]
  3. FERROUS SULFATE TAB [Concomitant]
  4. HYDROCORTISONE [Concomitant]
  5. ADRENALINE [Concomitant]
  6. MEPYRAMINE [Concomitant]

REACTIONS (4)
  - CHEST DISCOMFORT [None]
  - COUGH [None]
  - DYSPNOEA [None]
  - INFUSION RELATED REACTION [None]
